FAERS Safety Report 9295306 (Version 1)
Quarter: 2013Q2

REPORT INFORMATION
  Report Type: Spontaneous
  Country: FR (occurrence: FR)
  Receive Date: 20130517
  Receipt Date: 20130517
  Transmission Date: 20140414
  Serious: Yes (Hospitalization)
  Sender: FDA-Public Use
  Company Number: FR-JNJFOC-20130501816

PATIENT
  Age: 3 Year
  Sex: Female

DRUGS (9)
  1. SPORANOX [Suspect]
     Indication: PRODUCT USED FOR UNKNOWN INDICATION
     Route: 048
     Dates: start: 201206
  2. NEORAL [Interacting]
     Indication: BONE MARROW FAILURE
     Dosage: DOSES INCREASED UNTIL 110MG TWICE A DAY
     Route: 048
  3. NEORAL [Interacting]
     Indication: BONE MARROW FAILURE
     Dosage: DOSES INCREASED UNTIL 110MG TWICE A DAY
     Route: 048
  4. NEORAL [Interacting]
     Indication: BONE MARROW FAILURE
     Dosage: DOSES INCREASED UNTIL 110MG TWICE A DAY
     Route: 048
     Dates: start: 20120507
  5. MOPRAL [Concomitant]
     Route: 065
  6. ATGAM [Concomitant]
     Indication: BONE MARROW FAILURE
     Route: 065
  7. SOLU MEDROL [Concomitant]
     Route: 065
  8. BACTRIM [Concomitant]
     Route: 065
  9. FUNGIZONE [Concomitant]
     Route: 065

REACTIONS (5)
  - Renal failure [Recovered/Resolved]
  - Drug interaction [Recovered/Resolved]
  - Toxicity to various agents [Recovered/Resolved]
  - Decreased appetite [Recovered/Resolved]
  - Abdominal pain [Recovered/Resolved]
